FAERS Safety Report 10733314 (Version 3)
Quarter: 2015Q2

REPORT INFORMATION
  Report Type: Spontaneous
  Country: US (occurrence: US)
  Receive Date: 20150123
  Receipt Date: 20150610
  Transmission Date: 20150821
  Serious: Yes (Other)
  Sender: FDA-Public Use
  Company Number: US-BAYER-2015-004431

PATIENT
  Age: 21 Year
  Sex: Female
  Weight: 44 kg

DRUGS (2)
  1. MIRENA [Suspect]
     Active Substance: LEVONORGESTREL
     Indication: CONTRACEPTION
     Dosage: 20 MCG/24HR, CONT
     Route: 015
     Dates: start: 20121113, end: 20131213
  2. MIRENA [Suspect]
     Active Substance: LEVONORGESTREL
     Indication: CONTRACEPTION
     Dosage: 20 MCG/24HR, CONT
     Route: 015
     Dates: start: 2009, end: 20131119

REACTIONS (11)
  - Injury [None]
  - Device breakage [None]
  - Uterine perforation [None]
  - Pregnancy with contraceptive device [None]
  - Post procedural discomfort [None]
  - Device use error [None]
  - Device issue [None]
  - Infection [None]
  - Pain [None]
  - Drug ineffective [None]
  - Medical device pain [None]

NARRATIVE: CASE EVENT DATE: 2012
